FAERS Safety Report 25402312 (Version 1)
Quarter: 2025Q2

REPORT INFORMATION
  Report Type: Spontaneous
  Country: SE (occurrence: SE)
  Receive Date: 20250605
  Receipt Date: 20250605
  Transmission Date: 20250716
  Serious: Yes (Other)
  Sender: TEVA
  Company Number: SE-TEVA-VS-3337822

PATIENT
  Age: 38 Year
  Sex: Female

DRUGS (1)
  1. DIAZEPAM [Suspect]
     Active Substance: DIAZEPAM
     Indication: Anxiety disorder
     Route: 065
     Dates: end: 20200101

REACTIONS (7)
  - Suicidal ideation [Unknown]
  - Depression [Unknown]
  - Memory impairment [Unknown]
  - Somnolence [Unknown]
  - Libido decreased [Unknown]
  - Headache [Unknown]
  - Anxiety disorder [Unknown]
